FAERS Safety Report 9837850 (Version 3)
Quarter: 2014Q2

REPORT INFORMATION
  Report Type: Spontaneous
  Country: US (occurrence: None)
  Receive Date: 20131205
  Receipt Date: 20140416
  Transmission Date: 20141212
  Serious: No
  Sender: FDA-Public Use
  Company Number: 163-POMAL-13104278

PATIENT
  Age: 71 Year
  Sex: Male

DRUGS (1)
  1. POMALYST (POMALIDOMIDE) (4 MILLIGRAM, CAPSULES) [Suspect]
     Indication: PLASMA CELL MYELOMA
     Dosage: 4MG, 21 IN 28 D, PO
     Route: 048
     Dates: start: 20130913

REACTIONS (5)
  - Disturbance in attention [None]
  - Fatigue [None]
  - Lethargy [None]
  - Anaemia [None]
  - Plasma cell myeloma [None]
